FAERS Safety Report 8574282-9 (Version None)
Quarter: 2012Q3

REPORT INFORMATION
  Report Type: 
  Country: None (occurrence: None)
  Receive Date: 20120806
  Receipt Date: 20120726
  Transmission Date: 20120928
  Serious: Yes (Disabling)
  Sender: FDA-Public Use
  Company Number: PT-TEVA-350856ISR

PATIENT
  Age: 63 Year
  Sex: Female

DRUGS (3)
  1. DIAZEPAM [Concomitant]
     Indication: ANXIETY
     Dosage: 5 MILLIGRAM DAILY;
     Route: 048
  2. DEPRESSION [Concomitant]
     Indication: ANXIETY
     Dosage: 20 MILLIGRAM DAILY;
     Route: 048
  3. MIRTAZAPINE [Suspect]
     Indication: DEPRESSION
     Dosage: 15 MILLIGRAM DAILY; 1 TABLET PER DAY
     Route: 048
     Dates: start: 20120706, end: 20120706

REACTIONS (6)
  - ASTHENIA [None]
  - LOSS OF CONSCIOUSNESS [None]
  - PARAESTHESIA ORAL [None]
  - URINARY INCONTINENCE [None]
  - FAECAL INCONTINENCE [None]
  - SYNCOPE [None]
